FAERS Safety Report 4457381-2 (Version None)
Quarter: 2004Q3

REPORT INFORMATION
  Report Type: 
  Country: None (occurrence: None)
  Receive Date: 20040922
  Receipt Date: 20040909
  Transmission Date: 20050211
  Serious: Yes (Hospitalization, Other)
  Sender: FDA-Public Use
  Company Number: 2004052386

PATIENT
  Age: 63 Year
  Sex: Female
  Weight: 92.0802 kg

DRUGS (4)
  1. NEURONTIN [Suspect]
     Indication: ARTHRITIS
     Dosage: ORAL
     Route: 048
     Dates: start: 20000101
  2. NEURONTIN [Suspect]
     Indication: NEUROPATHY
     Dosage: ORAL
     Route: 048
     Dates: start: 20000101
  3. HYDROCODONE (HYDROCODONE) [Concomitant]
  4. ACETAMINOPHEN [Concomitant]

REACTIONS (3)
  - CEREBROVASCULAR ACCIDENT [None]
  - HEARING IMPAIRED [None]
  - SPINAL COLUMN STENOSIS [None]
